FAERS Safety Report 21909311 (Version 1)
Quarter: 2023Q1

REPORT INFORMATION
  Report Type: Spontaneous
  Country: BE (occurrence: BE)
  Receive Date: 20230125
  Receipt Date: 20230125
  Transmission Date: 20230417
  Serious: Yes (Other)
  Sender: FDA-Public Use
  Company Number: BE-KYOWAKIRIN-2022AKK019492

PATIENT
  Age: 52 Year
  Sex: Male

DRUGS (1)
  1. FENTANYL [Suspect]
     Active Substance: FENTANYL
     Indication: Anaesthesia
     Dosage: UNK
     Route: 065

REACTIONS (3)
  - Myocardial ischaemia [Unknown]
  - Hypotension [Unknown]
  - Oedema [Unknown]
